FAERS Safety Report 15809994 (Version 1)
Quarter: 2019Q1

REPORT INFORMATION
  Report Type: Spontaneous
  Country: US (occurrence: US)
  Receive Date: 20190111
  Receipt Date: 20190111
  Transmission Date: 20190417
  Serious: No
  Sender: FDA-Public Use
  Company Number: US-ROCHE-2121963

PATIENT
  Sex: Female

DRUGS (5)
  1. ENBREL [Concomitant]
     Active Substance: ETANERCEPT
     Route: 065
     Dates: start: 2014
  2. HUMIRA [Concomitant]
     Active Substance: ADALIMUMAB
  3. RITUXAN [Suspect]
     Active Substance: RITUXIMAB
     Indication: PRODUCT USED FOR UNKNOWN INDICATION
     Route: 065
     Dates: start: 2014, end: 2018
  4. METHOTREXATE SODIUM. [Concomitant]
     Active Substance: METHOTREXATE SODIUM
     Indication: RHEUMATOID ARTHRITIS
     Dosage: 25 MG/ML
     Route: 042
  5. SULFASALAZINE. [Concomitant]
     Active Substance: SULFASALAZINE

REACTIONS (1)
  - Drug effect decreased [Unknown]
